FAERS Safety Report 21355450 (Version 1)
Quarter: 2022Q3

REPORT INFORMATION
  Report Type: Spontaneous
  Country: DE (occurrence: DE)
  Receive Date: 20220920
  Receipt Date: 20220920
  Transmission Date: 20221027
  Serious: Yes (Life-Threatening, Hospitalization)
  Sender: FDA-Public Use
  Company Number: DE-NOVARTISPH-NVSC2022DE211438

PATIENT
  Age: 76 Year
  Sex: Female
  Weight: 70 kg

DRUGS (1)
  1. LISINOPRIL [Suspect]
     Active Substance: LISINOPRIL
     Indication: Product used for unknown indication
     Dosage: 10 MG (0.5-0-0-0)
     Route: 048

REACTIONS (7)
  - Dehydration [Unknown]
  - Loss of consciousness [Unknown]
  - Anal incontinence [Unknown]
  - Urinary incontinence [Unknown]
  - Tongue biting [Unknown]
  - Diarrhoea [Unknown]
  - Hyponatraemia [Unknown]
